FAERS Safety Report 20854617 (Version 8)
Quarter: 2022Q3

REPORT INFORMATION
  Report Type: Report from Study
  Country: US (occurrence: US)
  Receive Date: 20220520
  Receipt Date: 20220831
  Transmission Date: 20221026
  Serious: Yes (Other)
  Sender: FDA-Public Use
  Company Number: US-NOVARTISTESTPH-NVSC2022US116881

PATIENT
  Age: 65 Year
  Sex: Male

DRUGS (1)
  1. ENTRESTO [Suspect]
     Active Substance: SACUBITRIL\VALSARTAN
     Indication: Product used for unknown indication
     Dosage: UNK
     Route: 065

REACTIONS (11)
  - Cardiomyopathy [Unknown]
  - Anaphylactic shock [Unknown]
  - Cardiac disorder [Unknown]
  - Arthralgia [Unknown]
  - Pain in extremity [Not Recovered/Not Resolved]
  - Wound [Unknown]
  - Decreased activity [Unknown]
  - COVID-19 [Unknown]
  - Malaise [Unknown]
  - Dysgeusia [Unknown]
  - Dysstasia [Unknown]
